FAERS Safety Report 11276097 (Version 3)
Quarter: 2015Q3

REPORT INFORMATION
  Report Type: Spontaneous
  Country: JP (occurrence: JP)
  Receive Date: 20150716
  Receipt Date: 20150907
  Transmission Date: 20151125
  Serious: Yes (Hospitalization, Other)
  Sender: FDA-Public Use
  Company Number: JP-009507513-1507JPN004829

PATIENT
  Age: 73 Year
  Sex: Male

DRUGS (1)
  1. TIENAM FOR INTRAVENOUS DRIP INFUSION [Suspect]
     Active Substance: CILASTATIN SODIUM\IMIPENEM
     Indication: SEPSIS
     Dosage: DAILY DOSAGE UNKNOWN
     Route: 041

REACTIONS (2)
  - Endotoxaemia [Recovering/Resolving]
  - Shock [Recovering/Resolving]
